FAERS Safety Report 15491931 (Version 15)
Quarter: 2024Q1

REPORT INFORMATION
  Report Type: Spontaneous
  Country: FR (occurrence: FR)
  Receive Date: 20181012
  Receipt Date: 20240329
  Transmission Date: 20240409
  Serious: Yes (Hospitalization, Other)
  Sender: FDA-Public Use
  Company Number: FR-AUROBINDO-AUR-APL-2018-050019

PATIENT
  Age: 76 Year
  Sex: Female

DRUGS (40)
  1. ALPRAZOLAM [Suspect]
     Active Substance: ALPRAZOLAM
     Indication: Anxiety
     Dosage: 0.25 MILLIGRAM, ONCE A DAY
     Route: 048
  2. ALPRAZOLAM [Suspect]
     Active Substance: ALPRAZOLAM
     Dosage: 25 MILLIGRAM, ONCE A DAY
     Route: 048
  3. FOLIC ACID [Suspect]
     Active Substance: FOLIC ACID
     Indication: Folate deficiency
     Dosage: 10 MILLIGRAM, EVERY WEEK
     Route: 048
  4. FOLIC ACID [Suspect]
     Active Substance: FOLIC ACID
     Dosage: 10 MILLIGRAM, EVERY WEEK
     Route: 048
  5. MIRTAZAPINE [Suspect]
     Active Substance: MIRTAZAPINE
     Indication: Depression
     Dosage: 15 MILLIGRAM, ONCE A DAY
     Route: 048
  6. PANTOPRAZOLE [Suspect]
     Active Substance: PANTOPRAZOLE
     Indication: Gastrooesophageal reflux disease
     Dosage: 20 MILLIGRAM, ONCE A DAY
     Route: 048
  7. PANTOPRAZOLE [Suspect]
     Active Substance: PANTOPRAZOLE
     Indication: Pain
     Dosage: 15 MILLIGRAM, ONCE A DAY
     Route: 048
  8. PANTOPRAZOLE [Suspect]
     Active Substance: PANTOPRAZOLE
     Indication: Depression
     Dosage: 2.5 MILLIGRAM, ONCE A DAY
     Route: 048
  9. PANTOPRAZOLE [Suspect]
     Active Substance: PANTOPRAZOLE
     Dosage: 0.25 MILLIGRAM, ONCE A DAY
     Route: 048
  10. RAMIPRIL [Suspect]
     Active Substance: RAMIPRIL
     Indication: Product used for unknown indication
     Dosage: 2.5 MILLIGRAM, ONCE A DAY
     Route: 048
  11. SERTRALINE HYDROCHLORIDE [Suspect]
     Active Substance: SERTRALINE HYDROCHLORIDE
     Indication: Depression
     Dosage: 25 MILLIGRAM, ONCE A DAY
     Route: 048
  12. SERTRALINE HYDROCHLORIDE [Suspect]
     Active Substance: SERTRALINE HYDROCHLORIDE
     Dosage: 25 MILLIGRAM, ONCE A DAY
     Route: 048
  13. FOLIC ACID [Suspect]
     Active Substance: FOLIC ACID
     Indication: Folate deficiency
     Dosage: 10 MILLIGRAM, EVERY WEEK(2 CP DE 5 MG EN UNE PRISE)
     Route: 048
  14. SULFADIAZINE [Suspect]
     Active Substance: SULFADIAZINE
     Indication: Product used for unknown indication
     Dosage: 1000 MILLIGRAM, ONCE A DAY
     Route: 048
  15. SULFADIAZINE [Suspect]
     Active Substance: SULFADIAZINE
     Dosage: 500 MILLIGRAM, TWO TIMES A DAY
     Route: 054
  16. SULFADIAZINE [Suspect]
     Active Substance: SULFADIAZINE
     Dosage: 1000 MILLIGRAM, ONCE A DAY
     Route: 048
  17. SULFADIAZINE [Suspect]
     Active Substance: SULFADIAZINE
     Dosage: 500 MILLIGRAM, TWO TIMES A DAY
     Route: 054
  18. BISOPROLOL [Suspect]
     Active Substance: BISOPROLOL\BISOPROLOL FUMARATE
     Indication: Cardiac failure
     Dosage: 1.25 MILLIGRAM, ONCE A DAY
     Route: 048
  19. BISOPROLOL [Suspect]
     Active Substance: BISOPROLOL\BISOPROLOL FUMARATE
     Dosage: 1 DOSAGE FORM, ONCE A DAY
     Route: 048
  20. BISOPROLOL [Suspect]
     Active Substance: BISOPROLOL\BISOPROLOL FUMARATE
     Indication: Cardiac failure
     Dosage: 1.25 MILLIGRAM, ONCE A DAY
     Route: 048
  21. PREDNISONE [Suspect]
     Active Substance: PREDNISONE
     Indication: Product used for unknown indication
     Dosage: 9 MILLIGRAM, ONCE A DAY
     Route: 048
  22. PREDNISONE [Suspect]
     Active Substance: PREDNISONE
     Dosage: 9 MILLIGRAM, TWO TIMES A DAY
     Route: 048
  23. KARDEGIC [Suspect]
     Active Substance: ASPIRIN DL-LYSINE
     Indication: Product used for unknown indication
     Dosage: 75 MILLIGRAM, ONCE A DAY
     Route: 048
  24. LYRICA [Suspect]
     Active Substance: PREGABALIN
     Indication: Anxiety
     Dosage: 150 MILLIGRAM, ONCE A DAY
     Route: 048
     Dates: end: 20160705
  25. LYRICA [Suspect]
     Active Substance: PREGABALIN
     Indication: Pain
     Dosage: 75 MILLIGRAM, TWO TIMES A DAY
     Route: 048
     Dates: start: 20160705, end: 20160705
  26. PYRIMETHAMINE [Suspect]
     Active Substance: PYRIMETHAMINE
     Indication: Product used for unknown indication
     Dosage: 50 MILLIGRAM, ONCE A DAY
     Route: 048
     Dates: end: 20160705
  27. NOVATREX (METHOTREXATE) [Suspect]
     Active Substance: METHOTREXATE SODIUM
     Indication: Rheumatoid arthritis
     Dosage: 10 MILLIGRAM, ONCE A DAY(4 CP DE 2,5 MG EN UNE PRISE/SEMAINE)
     Route: 048
     Dates: end: 20160705
  28. NOVATREX (METHOTREXATE) [Suspect]
     Active Substance: METHOTREXATE SODIUM
     Dosage: 10 MILLIGRAM, EVERY WEEK(4 CP DE 2,5 MG EN UNE PRISE/SEMAINE)
     Route: 048
     Dates: start: 20160705, end: 20160718
  29. NOVATREX (METHOTREXATE) [Suspect]
     Active Substance: METHOTREXATE SODIUM
     Dosage: 4 DOSAGE FORM, EVERY WEEK
     Route: 048
     Dates: end: 20160705
  30. ORENCIA [Suspect]
     Active Substance: ABATACEPT
     Indication: Rheumatoid arthritis
     Dosage: 500 MILLIGRAM, 4 WEEKS
     Route: 042
     Dates: start: 2014
  31. ORENCIA [Suspect]
     Active Substance: ABATACEPT
     Dosage: 500 MILLIGRAM, FOUR TIMES/DAY
     Route: 042
     Dates: start: 2014
  32. ORENCIA [Suspect]
     Active Substance: ABATACEPT
     Dosage: 500 MILLIGRAM, Q4WK
     Route: 042
     Dates: start: 2014
  33. ORENCIA [Suspect]
     Active Substance: ABATACEPT
     Dosage: 500 MILLIGRAM, FOUR TIMES/DAY (6 HOURS)
     Route: 042
     Dates: start: 2014
  34. OXYCONTIN [Suspect]
     Active Substance: OXYCODONE HYDROCHLORIDE
     Indication: Pain
     Dosage: 2 DOSAGE FORM, ONCE A DAY
     Route: 048
  35. OXYCONTIN [Suspect]
     Active Substance: OXYCODONE HYDROCHLORIDE
     Dosage: 1 DOSAGE FORM
     Route: 048
  36. OXYCODONE HYDROCHLORIDE [Suspect]
     Active Substance: OXYCODONE HYDROCHLORIDE
     Indication: Pain
     Dosage: 5 MILLIGRAM, ONCE A DAY
     Route: 048
  37. OXYCODONE HYDROCHLORIDE [Suspect]
     Active Substance: OXYCODONE HYDROCHLORIDE
     Dosage: 1 DOSAGE FORM, TWO TIMES A DAY
     Route: 048
  38. OXYCONTIN [Suspect]
     Active Substance: OXYCODONE HYDROCHLORIDE
     Indication: Pain
     Dosage: 1 DOSAGE FORM, TWO TIMES A DAY
     Route: 048
  39. CALCIUM PHOSPHATE, DIBASIC, ANHYDROUS\MAGNESIUM GLYCEROPHOSPHATE\PHOSP [Suspect]
     Active Substance: CALCIUM PHOSPHATE, DIBASIC, ANHYDROUS\MAGNESIUM GLYCEROPHOSPHATE\PHOSPHORIC ACID\SODIUM PHOSPHATE, D
     Indication: Product used for unknown indication
     Dosage: 100 MILLIGRAM, ONCE A DAY
     Route: 048
     Dates: end: 20160705
  40. RISPERDAL [Suspect]
     Active Substance: RISPERIDONE
     Indication: Product used for unknown indication
     Dosage: 0.25 MILLIGRAM, ONCE A DAY (25 MG DAILY UNK TO 05-JUL-2016 )
     Route: 048
     Dates: end: 20160705

REACTIONS (2)
  - Bone marrow failure [Recovered/Resolved]
  - Pancytopenia [Recovered/Resolved]

NARRATIVE: CASE EVENT DATE: 20160701
